FAERS Safety Report 5120989-5 (Version None)
Quarter: 2006Q4

REPORT INFORMATION
  Report Type: 
  Country: None (occurrence: None)
  Receive Date: 20061005
  Receipt Date: 20060922
  Transmission Date: 20070319
  Serious: Yes (Other)
  Sender: FDA-Public Use
  Company Number: PHEH2006US12106

PATIENT
  Age: 20 Year
  Sex: Female

DRUGS (1)
  1. TRILEPTAL [Suspect]
     Indication: SIMPLE PARTIAL SEIZURES
     Dosage: 150 MG, BID
     Dates: start: 20050101

REACTIONS (4)
  - BRAIN OPERATION [None]
  - DEJA VU [None]
  - DIZZINESS [None]
  - HEADACHE [None]
